FAERS Safety Report 20483934 (Version 1)
Quarter: 2022Q1

REPORT INFORMATION
  Report Type: Spontaneous
  Country: US (occurrence: None)
  Receive Date: 20220216
  Receipt Date: 20220216
  Transmission Date: 20220424
  Serious: No
  Sender: FDA-Public Use
  Company Number: None

PATIENT
  Age: 16 Year
  Sex: Male
  Weight: 54 kg

DRUGS (1)
  1. GADOLINIUM [Suspect]
     Active Substance: GADOLINIUM
     Indication: Magnetic resonance imaging
     Dates: start: 20210908, end: 20210908

REACTIONS (6)
  - Skin discolouration [None]
  - Contrast media toxicity [None]
  - Contrast media reaction [None]
  - Asthenia [None]
  - Disturbance in attention [None]
  - General physical condition abnormal [None]

NARRATIVE: CASE EVENT DATE: 20210908
